FAERS Safety Report 5318812-9 (Version None)
Quarter: 2007Q2

REPORT INFORMATION
  Report Type: 
  Country: None (occurrence: None)
  Receive Date: 20070503
  Receipt Date: 20070427
  Transmission Date: 20071010
  Serious: Yes (Hospitalization)
  Sender: FDA-Public Use
  Company Number: 2007-02099

PATIENT
  Age: 23 Year
  Sex: Male

DRUGS (3)
  1. METRONIDAZOLE [Suspect]
     Indication: DUODENAL ULCER
     Dosage: 500 MG, BID, ORAL
     Route: 048
     Dates: start: 20050101, end: 20050101
  2. CLARITHROMYCIN [Suspect]
     Indication: HELICOBACTER INFECTION
     Dosage: 500 MG, BID, ORAL
     Route: 048
     Dates: start: 20050101, end: 20050101
  3. OMEPRAZOLE [Suspect]
     Indication: DUODENAL ULCER
     Dosage: 20 MG, BID, ORAL
     Route: 048
     Dates: start: 20050101, end: 20050101

REACTIONS (2)
  - HICCUPS [None]
  - PNEUMOMEDIASTINUM [None]
